FAERS Safety Report 5267985-5 (Version None)
Quarter: 2007Q1

REPORT INFORMATION
  Report Type: 
  Country: None (occurrence: None)
  Receive Date: 20061214
  Receipt Date: 20060316
  Transmission Date: 20070707
  Serious: Yes (Hospitalization, Other)
  Sender: FDA-Public Use
  Company Number: 2006037978

PATIENT
  Age: 31 Year
  Sex: Female
  Weight: 45.3597 kg

DRUGS (4)
  1. XANAX [Suspect]
     Indication: ANXIETY
     Dosage: 0.25 MG, ORAL
     Route: 048
     Dates: start: 20051001, end: 20051001
  2. HERBAL PREPARATION [Concomitant]
  3. ALL OTHER THERAPEUTIC PRODUCTS [Concomitant]
  4. SILVER COLLOIDAL [Concomitant]

REACTIONS (9)
  - ANXIETY [None]
  - BLOOD CORTISOL ABNORMAL [None]
  - MEDICAL DEVICE REMOVAL [None]
  - MUSCLE TWITCHING [None]
  - MYALGIA [None]
  - NEUROTOXICITY [None]
  - PALPITATIONS [None]
  - SEDATION [None]
  - WEIGHT DECREASED [None]
